FAERS Safety Report 8435632-7 (Version None)
Quarter: 2012Q2

REPORT INFORMATION
  Report Type: 
  Country: None (occurrence: None)
  Receive Date: 20120614
  Receipt Date: 20120607
  Transmission Date: 20120825
  Serious: Yes (Other)
  Sender: FDA-Public Use
  Company Number: US-PFIZER INC-2012138057

PATIENT
  Age: 51 Year
  Sex: Female

DRUGS (2)
  1. LYRICA [Suspect]
     Indication: FIBROMYALGIA
     Dosage: UNK
  2. VOLTAREN [Suspect]
     Indication: ARTHRITIS
     Dosage: UNK, 4X/DAY
     Route: 061
     Dates: start: 20090101

REACTIONS (8)
  - CHRONIC OBSTRUCTIVE PULMONARY DISEASE [None]
  - OEDEMA PERIPHERAL [None]
  - PAIN IN EXTREMITY [None]
  - INCREASED APPETITE [None]
  - GAIT DISTURBANCE [None]
  - GASTRITIS [None]
  - CONSTIPATION [None]
  - BURNING SENSATION [None]
